FAERS Safety Report 22235490 (Version 1)
Quarter: 2023Q2

REPORT INFORMATION
  Report Type: Spontaneous
  Country: US (occurrence: None)
  Receive Date: 20230419
  Receipt Date: 20230419
  Transmission Date: 20230722
  Serious: Yes (Death)
  Sender: FDA-Public Use
  Company Number: None

PATIENT
  Age: 72 Year
  Sex: Male
  Weight: 94.7 kg

DRUGS (4)
  1. TOFACITINIB [Suspect]
     Active Substance: TOFACITINIB
     Indication: Alopecia areata
     Dates: start: 20180605, end: 20230207
  2. ATORVASTATIN [Concomitant]
  3. GABAPENTIN [Concomitant]
  4. SILDENAFIL [Concomitant]

REACTIONS (10)
  - Treatment noncompliance [None]
  - Therapy change [None]
  - Acute hepatic failure [None]
  - Small cell lung cancer [None]
  - Metastases to liver [None]
  - Septic shock [None]
  - Alcohol use [None]
  - Hypertransaminasaemia [None]
  - Insurance issue [None]
  - Therapy cessation [None]

NARRATIVE: CASE EVENT DATE: 20230207
